FAERS Safety Report 14365837 (Version 2)
Quarter: 2018Q2

REPORT INFORMATION
  Report Type: Spontaneous
  Country: US (occurrence: US)
  Receive Date: 20180109
  Receipt Date: 20180424
  Transmission Date: 20180711
  Serious: No
  Sender: FDA-Public Use
  Company Number: US-LUPIN PHARMACEUTICALS INC.-2017-06823

PATIENT

DRUGS (1)
  1. ABACAVIR AND LAMIVUDINE TABLETS USP, 600 MG/300 MG [Suspect]
     Active Substance: ABACAVIR\LAMIVUDINE
     Indication: HIV INFECTION
     Dosage: 600MG/300MG, QD
     Route: 048
     Dates: start: 201701

REACTIONS (7)
  - Abdominal pain upper [Not Recovered/Not Resolved]
  - Night sweats [Not Recovered/Not Resolved]
  - Flatulence [Not Recovered/Not Resolved]
  - Diarrhoea [Not Recovered/Not Resolved]
  - Product physical issue [Not Recovered/Not Resolved]
  - Back pain [Not Recovered/Not Resolved]
  - Blood bilirubin increased [Not Recovered/Not Resolved]

NARRATIVE: CASE EVENT DATE: 20170928
